FAERS Safety Report 8698064 (Version 2)
Quarter: 2012Q4

REPORT INFORMATION
  Report Type: Report from Study
  Country: US (occurrence: US)
  Receive Date: 20120802
  Receipt Date: 20120911
  Transmission Date: 20130627
  Serious: Yes (Hospitalization)
  Sender: FDA-Public Use
  Company Number: US-BRISTOL-MYERS SQUIBB COMPANY-16803405

PATIENT
  Age: 55 Year
  Sex: Male

DRUGS (12)
  1. BLINDED: SAXAGLIPTIN [Suspect]
     Indication: TYPE 2 DIABETES MELLITUS
     Dates: start: 20110426
  2. METFORMIN HCL [Suspect]
     Indication: TYPE 2 DIABETES MELLITUS
  3. ACTOS [Suspect]
     Indication: TYPE 2 DIABETES MELLITUS
  4. GLIPIZIDE [Suspect]
     Indication: TYPE 2 DIABETES MELLITUS
     Dates: start: 20120719, end: 20120719
  5. HUMULIN [Suspect]
     Indication: TYPE 2 DIABETES MELLITUS
     Dates: start: 20120719, end: 20120724
  6. UNSPECIFIED INGREDIENT [Suspect]
     Indication: TYPE 2 DIABETES MELLITUS
     Dates: start: 20110426
  7. ACETAMINOPHEN [Suspect]
     Dates: start: 20120719, end: 20120719
  8. PERCOCET [Suspect]
     Dates: start: 20120721, end: 20120722
  9. RAMIPRIL [Suspect]
  10. NORCO [Suspect]
     Dates: start: 20120720, end: 20120721
  11. TRAMADOL [Concomitant]
     Dates: start: 20120721, end: 20120724
  12. ASPIRIN [Concomitant]

REACTIONS (2)
  - Renal failure acute [Recovered/Resolved]
  - Confusional state [Recovered/Resolved]
